FAERS Safety Report 6896645-X (Version None)
Quarter: 2010Q3

REPORT INFORMATION
  Report Type: 
  Country: None (occurrence: None)
  Receive Date: 20100802
  Receipt Date: 20070111
  Transmission Date: 20110219
  Serious: No
  Sender: FDA-Public Use
  Company Number: US-PFIZER INC-2007004586

PATIENT
  Age: 89 Year
  Sex: Male

DRUGS (2)
  1. LYRICA [Suspect]
     Indication: SCIATICA
     Dosage: TID: EVERYDAY
     Dates: start: 20061106
  2. CAFFEINE [Suspect]

REACTIONS (3)
  - CONSTIPATION [None]
  - FATIGUE [None]
  - SOMNOLENCE [None]
